FAERS Safety Report 16372947 (Version 1)
Quarter: 2019Q2

REPORT INFORMATION
  Report Type: Spontaneous
  Country: SE (occurrence: SE)
  Receive Date: 20190530
  Receipt Date: 20190530
  Transmission Date: 20190711
  Serious: Yes (Death, Hospitalization)
  Sender: FDA-Public Use
  Company Number: PHHY2019SE124613

PATIENT
  Sex: Female

DRUGS (3)
  1. TAFINLAR [Suspect]
     Active Substance: DABRAFENIB MESYLATE
     Dosage: UNK (75 PERCENT LOWER DOSE)
     Route: 065
     Dates: start: 20190315, end: 20190321
  2. MEKINIST [Suspect]
     Active Substance: TRAMETINIB DIMETHYL SULFOXIDE
     Indication: PRODUCT USED FOR UNKNOWN INDICATION
     Dosage: UNK
     Route: 065
     Dates: end: 20190321
  3. TAFINLAR [Suspect]
     Active Substance: DABRAFENIB MESYLATE
     Indication: PRODUCT USED FOR UNKNOWN INDICATION
     Route: 065

REACTIONS (8)
  - Tumour lysis syndrome [Fatal]
  - Renal failure [Fatal]
  - Arthralgia [Fatal]
  - Pyrexia [Fatal]
  - Septic shock [Fatal]
  - Vomiting [Fatal]
  - Chills [Fatal]
  - Abdominal pain upper [Fatal]
